FAERS Safety Report 9913988 (Version 10)
Quarter: 2014Q2

REPORT INFORMATION
  Report Type: Report from Study
  Country: US (occurrence: US)
  Receive Date: 20140220
  Receipt Date: 20140619
  Transmission Date: 20141212
  Serious: Yes (Hospitalization, Other)
  Sender: FDA-Public Use
  Company Number: US-ACTELION-A-US2013-92325

PATIENT
  Age: 47 Year
  Sex: Male

DRUGS (3)
  1. VENTAVIS [Suspect]
     Indication: PULMONARY ARTERIAL HYPERTENSION
     Dosage: 5 MCG, UNK
     Route: 055
     Dates: start: 20130920
  2. LETAIRIS [Suspect]
     Dosage: 10 MG, UNK
     Dates: start: 20130424
  3. ADCIRCA [Concomitant]

REACTIONS (17)
  - Weight decreased [Recovering/Resolving]
  - Hernia repair [Unknown]
  - Headache [Recovering/Resolving]
  - Dizziness [Unknown]
  - Flushing [Unknown]
  - Paranoia [Recovering/Resolving]
  - Terminal insomnia [Recovering/Resolving]
  - Depression [Recovering/Resolving]
  - Vomiting [Recovering/Resolving]
  - Hypophagia [Unknown]
  - Cyst [Not Recovered/Not Resolved]
  - Hernia [Unknown]
  - Hernia pain [Unknown]
  - Varicose vein [Not Recovered/Not Resolved]
  - Panic attack [Unknown]
  - Adverse event [Unknown]
  - Anxiety [Unknown]
